FAERS Safety Report 13560577 (Version 1)
Quarter: 2017Q2

REPORT INFORMATION
  Report Type: Spontaneous
  Country: US (occurrence: US)
  Receive Date: 20170518
  Receipt Date: 20170518
  Transmission Date: 20170830
  Serious: No
  Sender: FDA-Public Use
  Company Number: US-ROCHE-1769057

PATIENT
  Sex: Male

DRUGS (5)
  1. FUZEON [Suspect]
     Active Substance: ENFUVIRTIDE
     Indication: HIV TEST POSITIVE
     Route: 065
  2. PROMACTA [Concomitant]
     Active Substance: ELTROMBOPAG OLAMINE
     Indication: PLATELET COUNT DECREASED
  3. NEXIUM [Concomitant]
     Active Substance: ESOMEPRAZOLE MAGNESIUM
  4. TRUVADA [Concomitant]
     Active Substance: EMTRICITABINE\TENOFOVIR DISOPROXIL FUMARATE
  5. DIDANOSINE. [Concomitant]
     Active Substance: DIDANOSINE
     Indication: HIV TEST POSITIVE

REACTIONS (3)
  - Injection site urticaria [Unknown]
  - Erythema [Unknown]
  - Injection site pain [Unknown]
